FAERS Safety Report 5571645-0 (Version None)
Quarter: 2007Q4

REPORT INFORMATION
  Report Type: 
  Country: None (occurrence: None)
  Receive Date: 20071221
  Receipt Date: 20071121
  Transmission Date: 20080405
  Serious: No
  Sender: FDA-Public Use
  Company Number: US-BRISTOL-MYERS SQUIBB COMPANY-13990163

PATIENT
  Age: 33 Year
  Sex: Female
  Weight: 63 kg

DRUGS (2)
  1. SPRYCEL [Suspect]
     Indication: CHRONIC MYELOID LEUKAEMIA
     Route: 048
     Dates: start: 20071116
  2. POTASSIUM CHLORIDE [Concomitant]

REACTIONS (5)
  - DEHYDRATION [None]
  - HEADACHE [None]
  - MYALGIA [None]
  - NAUSEA [None]
  - VOMITING [None]
